FAERS Safety Report 24355736 (Version 3)
Quarter: 2025Q1

REPORT INFORMATION
  Report Type: Report from Study
  Country: CO (occurrence: CO)
  Receive Date: 20240924
  Receipt Date: 20250103
  Transmission Date: 20250409
  Serious: Yes (Other)
  Sender: JOHNSON AND JOHNSON
  Company Number: CO-JNJFOC-20240952449

PATIENT
  Age: 43 Year
  Sex: Female
  Weight: 63 kg

DRUGS (2)
  1. SIMPONI [Suspect]
     Active Substance: GOLIMUMAB
     Indication: Axial spondyloarthritis
     Route: 058
     Dates: start: 20230908, end: 20240503
  2. SIMPONI [Suspect]
     Active Substance: GOLIMUMAB
     Route: 058

REACTIONS (1)
  - Intestinal tuberculosis [Not Recovered/Not Resolved]

NARRATIVE: CASE EVENT DATE: 20240501
